FAERS Safety Report 9398856 (Version 2)
Quarter: 2013Q3

REPORT INFORMATION
  Report Type: Report from Study
  Country: JP (occurrence: JP)
  Receive Date: 20130713
  Receipt Date: 20130927
  Transmission Date: 20140515
  Serious: Yes (Death, Life-Threatening)
  Sender: FDA-Public Use
  Company Number: JP-009507513-1307JPN006323

PATIENT
  Age: 75 Year
  Sex: Male

DRUGS (3)
  1. DIAZOXIDE [Suspect]
     Indication: HYPOGLYCAEMIA
     Dosage: 25 MG, QD, MORNING
     Route: 048
     Dates: start: 20130122, end: 20130122
  2. DIAZOXIDE [Suspect]
     Dosage: 25 MG, BID, MORNING, EVENING
     Route: 048
     Dates: start: 20130123, end: 20130123
  3. DIAZOXIDE [Suspect]
     Dosage: 25 MG, TID, MORNING, DAYTIME, EVENING
     Route: 048
     Dates: start: 20130124, end: 20130126

REACTIONS (1)
  - Pneumonia aspiration [Fatal]
